FAERS Safety Report 5582536-3 (Version None)
Quarter: 2007Q4

REPORT INFORMATION
  Report Type: 
  Country: None (occurrence: None)
  Receive Date: 20071130
  Receipt Date: 20070222
  Transmission Date: 20080405
  Serious: Yes (Other)
  Sender: FDA-Public Use
  Company Number: WAES 0702USA04091

PATIENT
  Age: 60 Year
  Sex: Female
  Weight: 116.1208 kg

DRUGS (6)
  1. FOSAMAX [Suspect]
     Indication: OSTEOPOROSIS PROPHYLAXIS
     Dosage: 70 MG, PO
     Route: 048
     Dates: start: 20060620, end: 20060721
  2. ATACAND [Concomitant]
  3. LIPITOR [Concomitant]
  4. HYDROXYCHLOROQUINE SUFATE [Concomitant]
  5. INSULIN [Concomitant]
  6. METHOTREXATE [Concomitant]

REACTIONS (1)
  - OSTEONECROSIS [None]
